FAERS Safety Report 9942591 (Version 1)
Quarter: 2014Q1

REPORT INFORMATION
  Report Type: Report from Study
  Country: US (occurrence: US)
  Receive Date: 20140303
  Receipt Date: 20140303
  Transmission Date: 20141002
  Serious: No
  Sender: FDA-Public Use
  Company Number: US-ABBVIE-13P-163-1045063-00

PATIENT
  Age: 68 Year
  Sex: Male

DRUGS (9)
  1. HUMIRA [Suspect]
     Indication: CROHN^S DISEASE
     Dosage: LOADING DOSE
     Dates: start: 20130130
  2. POTASSIUM [Concomitant]
     Indication: MINERAL SUPPLEMENTATION
  3. PRILOSEC [Concomitant]
     Indication: GASTROOESOPHAGEAL REFLUX DISEASE
  4. JALYN [Concomitant]
     Indication: PROSTATOMEGALY
     Dosage: 0.5/0.4 MG DAILY
  5. MICARDIS [Concomitant]
     Indication: BLOOD PRESSURE
     Dosage: 20 MG DAILY
  6. LOPRAMIDE [Concomitant]
     Indication: CROHN^S DISEASE
  7. ALIGN [Concomitant]
     Indication: CROHN^S DISEASE
  8. MAGNESIUM CHLORIDE [Concomitant]
     Indication: BLOOD MAGNESIUM
  9. MULTIVITAMIN [Concomitant]
     Indication: VITAMIN SUPPLEMENTATION

REACTIONS (2)
  - Injection site pain [Recovered/Resolved]
  - Injection site pain [Recovered/Resolved]
